FAERS Safety Report 21129825 (Version 1)
Quarter: 2022Q3

REPORT INFORMATION
  Report Type: Spontaneous
  Country: CA (occurrence: None)
  Receive Date: 20220726
  Receipt Date: 20220726
  Transmission Date: 20221027
  Serious: Yes (Other)
  Sender: FDA-Public Use
  Company Number: CA-ROCHE-3142289

PATIENT
  Age: 79 Year
  Sex: Female
  Weight: 59 kg

DRUGS (17)
  1. ESBRIET [Suspect]
     Active Substance: PIRFENIDONE
     Indication: Idiopathic pulmonary fibrosis
     Route: 048
  2. HYDROMORPHONE HYDROCHLORIDE [Suspect]
     Active Substance: HYDROMORPHONE HYDROCHLORIDE
     Indication: Analgesic therapy
     Route: 065
  3. TRAMADOL HYDROCHLORIDE [Suspect]
     Active Substance: TRAMADOL HYDROCHLORIDE
     Indication: Product used for unknown indication
     Route: 065
  4. OMNARIS [Concomitant]
     Active Substance: CICLESONIDE
  5. SERC (BETAHISTINE HYDROCHLORIDE) [Concomitant]
     Active Substance: BETAHISTINE HYDROCHLORIDE
  6. AMLODIPINE [Concomitant]
     Active Substance: AMLODIPINE BESYLATE
  7. METFORMIN [Concomitant]
     Active Substance: METFORMIN HYDROCHLORIDE
  8. UMECLIDINIUM BROMIDE\VILANTEROL TRIFENATATE [Concomitant]
     Active Substance: UMECLIDINIUM BROMIDE\VILANTEROL TRIFENATATE
  9. ASPIRIN [Concomitant]
     Active Substance: ASPIRIN
  10. ATENOLOL [Concomitant]
     Active Substance: ATENOLOL
  11. ATORVASTATIN [Concomitant]
     Active Substance: ATORVASTATIN
  12. TRAMADOL [Concomitant]
     Active Substance: TRAMADOL
  13. PANCRELIPASE [Concomitant]
     Active Substance: PANCRELIPASE
  14. PANTOPRAZOLE [Concomitant]
     Active Substance: PANTOPRAZOLE
  15. VENTOLIN [Concomitant]
     Active Substance: ALBUTEROL SULFATE
  16. APIXABAN [Concomitant]
     Active Substance: APIXABAN
  17. INDAPAMIDE [Concomitant]
     Active Substance: INDAPAMIDE

REACTIONS (7)
  - Abdominal discomfort [Not Recovered/Not Resolved]
  - Spinal fracture [Not Recovered/Not Resolved]
  - Somnolence [Not Recovered/Not Resolved]
  - Abdominal pain upper [Not Recovered/Not Resolved]
  - Pain [Not Recovered/Not Resolved]
  - Back injury [Not Recovered/Not Resolved]
  - Weight decreased [Not Recovered/Not Resolved]
